FAERS Safety Report 4646318-9 (Version None)
Quarter: 2005Q2

REPORT INFORMATION
  Report Type: 
  Country: None (occurrence: None)
  Receive Date: 20050422
  Receipt Date: 20050411
  Transmission Date: 20051028
  Serious: Yes (Hospitalization)
  Sender: FDA-Public Use
  Company Number: 2005-BP-05841BP

PATIENT
  Age: 75 Year
  Sex: Male
  Weight: 62 kg

DRUGS (14)
  1. MICARDIS [Suspect]
     Indication: CARDIOVASCULAR DISORDER
     Dosage: PO
     Route: 048
     Dates: start: 20020708
  2. MICARDIS [Suspect]
     Indication: CEREBROVASCULAR ACCIDENT
     Dosage: PO
     Route: 048
     Dates: start: 20020708
  3. MICARDIS [Suspect]
     Indication: MYOCARDIAL INFARCTION
     Dosage: PO
     Route: 048
     Dates: start: 20020708
  4. MICARDIS [Suspect]
     Indication: PROPHYLAXIS
     Dosage: PO
     Route: 048
     Dates: start: 20020708
  5. RAMIPRIL [Suspect]
     Indication: CARDIOVASCULAR DISORDER
     Dosage: PO
     Route: 048
     Dates: start: 20020708
  6. RAMIPRIL [Suspect]
     Indication: CEREBROVASCULAR ACCIDENT
     Dosage: PO
     Route: 048
     Dates: start: 20020708
  7. RAMIPRIL [Suspect]
     Indication: MYOCARDIAL INFARCTION
     Dosage: PO
     Route: 048
     Dates: start: 20020708
  8. RAMIPRIL [Suspect]
     Indication: PROPHYLAXIS
     Dosage: PO
     Route: 048
     Dates: start: 20020708
  9. GLYBURIDE [Concomitant]
     Indication: CEREBROVASCULAR ACCIDENT
  10. GLYBURIDE [Concomitant]
     Indication: PROPHYLAXIS
  11. TICLOPIDINE (TICLOPIDINE) [Concomitant]
  12. CARVEDILOL [Concomitant]
  13. NORVASC [Concomitant]
  14. SIMVASTATIN [Concomitant]

REACTIONS (1)
  - RENAL FAILURE ACUTE [None]
